FAERS Safety Report 7600438-5 (Version None)
Quarter: 2011Q3

REPORT INFORMATION
  Report Type: 
  Country: None (occurrence: None)
  Receive Date: 20110711
  Receipt Date: 20110627
  Transmission Date: 20111222
  Serious: Yes (Hospitalization, Other)
  Sender: FDA-Public Use
  Company Number: PHHY2011BR58011

PATIENT
  Sex: Female

DRUGS (4)
  1. DIOVAN [Suspect]
     Dosage: 320 MG, UNK
  2. GLYBURIDE [Concomitant]
     Dosage: 5 MG, UNK
  3. CLONIDINE HYDROCHLORIDE [Concomitant]
     Dosage: 0.1 MG, UNK
  4. INDAPAMIDE [Concomitant]
     Dosage: 1.5 MG, UNK

REACTIONS (3)
  - HYPERTENSION [None]
  - URINARY TRACT INFECTION [None]
  - DIABETES MELLITUS [None]
